FAERS Safety Report 6044698-3 (Version None)
Quarter: 2009Q1

REPORT INFORMATION
  Report Type: 
  Country: None (occurrence: None)
  Receive Date: 20090120
  Receipt Date: 20090112
  Transmission Date: 20090719
  Serious: Yes (Death, Hospitalization)
  Sender: FDA-Public Use
  Company Number: DE-ROXANE LABORATORIES, INC.-2009-RO-00047RO

PATIENT
  Age: 55 Year
  Sex: Male

DRUGS (10)
  1. CYCLOPHOSPHAMIDE [Suspect]
     Indication: NON-HODGKIN'S LYMPHOMA UNSPECIFIED HISTOLOGY INDOLENT
  2. CYCLOPHOSPHAMIDE [Suspect]
     Indication: NON-HODGKIN'S LYMPHOMA RECURRENT
     Dates: start: 20031201, end: 20040401
  3. PREDNISONE [Suspect]
     Indication: NON-HODGKIN'S LYMPHOMA UNSPECIFIED HISTOLOGY INDOLENT
  4. VINCRISTINE [Suspect]
     Indication: NON-HODGKIN'S LYMPHOMA UNSPECIFIED HISTOLOGY INDOLENT
  5. RITUXIMAB [Suspect]
     Indication: NON-HODGKIN'S LYMPHOMA RECURRENT
     Dates: start: 20031201, end: 20040401
  6. FLUDARABINE PHOSPHATE [Suspect]
     Indication: NON-HODGKIN'S LYMPHOMA RECURRENT
     Dates: start: 20031201, end: 20040401
  7. PHENPROCOUMON [Suspect]
     Indication: THROMBOSIS
     Dates: end: 20040601
  8. PHENPROCOUMON [Suspect]
     Indication: DEEP VEIN THROMBOSIS
  9. PREDNISOLONE [Suspect]
     Indication: AUTOIMMUNE HEPATITIS
  10. LAMIVUDINE [Concomitant]
     Indication: HEPATITIS B

REACTIONS (4)
  - ACUTE HEPATIC FAILURE [None]
  - HEPATITIS B [None]
  - MULTI-ORGAN FAILURE [None]
  - SEPTIC SHOCK [None]
